FAERS Safety Report 4993530-5 (Version None)
Quarter: 2006Q2

REPORT INFORMATION
  Report Type: 
  Country: None (occurrence: None)
  Receive Date: 20060503
  Receipt Date: 20060503
  Transmission Date: 20061013
  Serious: Yes (Hospitalization)
  Sender: FDA-Public Use
  Company Number: None

PATIENT
  Sex: Male
  Weight: 116.8466 kg

DRUGS (29)
  1. DOXYCYCLINE [Suspect]
     Indication: ARTHRITIS INFECTIVE
     Dosage: 100 MG BID PO
     Route: 048
  2. METOPROLOL 100 MG [Suspect]
     Indication: CARDIAC FAILURE CONGESTIVE
     Dosage: 100 MG QID PO
     Route: 048
  3. METOPROLOL 100 MG [Suspect]
     Indication: CORONARY ARTERY DISEASE
     Dosage: 100 MG QID PO
     Route: 048
  4. METOPROLOL 100 MG [Suspect]
     Indication: HYPERTENSION
     Dosage: 100 MG QID PO
     Route: 048
  5. ASPIRIN [Concomitant]
  6. FUROSEMIDE [Concomitant]
  7. SENNA CONC [Concomitant]
  8. MULTIVITAMIN/MINERALS THERAPEUT CAP [Concomitant]
  9. NIACIN [Concomitant]
  10. SIMVASTATIN [Concomitant]
  11. HUMULIN R [Concomitant]
  12. NOVOLIN R INJECT [Concomitant]
  13. AMIODARONE HCL [Concomitant]
  14. DIPHENHYDRAMINE HCL [Concomitant]
  15. LISINOPRIL [Concomitant]
  16. OMEPRAZOLE [Concomitant]
  17. HUMULIN N [Concomitant]
  18. INSULIN NOVOLIN 70/30 NPH/REG [Concomitant]
  19. TERAZOSIN HCL [Concomitant]
  20. CLOPIDOGREL BISULFATE [Concomitant]
  21. GUAIFENESIN SYRUP [Concomitant]
  22. CITALOPRAM HYDROBROMIDE [Concomitant]
  23. METOPROLOL TARTRATE [Concomitant]
  24. ISOSORBIDE MONONITRATE [Concomitant]
  25. NITROGLYCERIN SL [Concomitant]
  26. WARFARIN SODIUM [Concomitant]
  27. FLUNISOLIDE [Concomitant]
  28. GABAPENTIN [Concomitant]
  29. SENNOSIDE [Concomitant]

REACTIONS (6)
  - ANGINA PECTORIS [None]
  - CHEST PAIN [None]
  - DRUG DOSE OMISSION [None]
  - DRUG EFFECT DECREASED [None]
  - DRUG INTERACTION [None]
  - TREATMENT NONCOMPLIANCE [None]
